FAERS Safety Report 5113164-1 (Version None)
Quarter: 2006Q3

REPORT INFORMATION
  Report Type: 
  Country: None (occurrence: None)
  Receive Date: 20060922
  Receipt Date: 20060724
  Transmission Date: 20061208
  Serious: Yes (Hospitalization)
  Sender: FDA-Public Use
  Company Number: IT-ABBOTT-06P-083-0338782-00

PATIENT
  Sex: Female
  Weight: 66 kg

DRUGS (8)
  1. HUMIRA [Suspect]
     Indication: RHEUMATOID ARTHRITIS
     Route: 058
     Dates: start: 20050318, end: 20060626
  2. RABEPRAZOLE SODIUM [Concomitant]
     Indication: PROPHYLAXIS AGAINST GASTROINTESTINAL ULCER
  3. ASPIRIN [Concomitant]
     Indication: ISCHAEMIC CARDIOMYOPATHY
  4. ENALAPRIL MALEATE [Concomitant]
     Indication: HYPERTENSION
  5. RAMIPRIL [Concomitant]
     Indication: HYPERTENSION
  6. LEKOVIT CA [Concomitant]
     Indication: OSTEOPOROSIS
     Dosage: 1000+800 UI
  7. COMMERCIAL HUMIRA [Concomitant]
     Indication: RHEUMATOID ARTHRITIS
     Route: 058
     Dates: start: 20040910
  8. HEPARIN-FRACTION, SODIUM SALT [Concomitant]
     Indication: PROPHYLAXIS
     Dates: start: 20060701

REACTIONS (19)
  - AORTIC ARTERIOSCLEROSIS [None]
  - ATRIAL FIBRILLATION [None]
  - CALCINOSIS [None]
  - DIABETES MELLITUS [None]
  - DILATATION ATRIAL [None]
  - HEPATIC STEATOSIS [None]
  - HEPATOMEGALY [None]
  - OSTEOARTHRITIS [None]
  - PARVOVIRUS B19 SEROLOGY POSITIVE [None]
  - PELVIC FRACTURE [None]
  - PERICARDIAL EFFUSION [None]
  - PNEUMONIA [None]
  - PULMONARY FIBROSIS [None]
  - PULMONARY HYPERTENSION [None]
  - RENAL CYST [None]
  - SCAR [None]
  - SUPRAVENTRICULAR EXTRASYSTOLES [None]
  - TRICUSPID VALVE INCOMPETENCE [None]
  - VENTRICULAR HYPERTROPHY [None]
